FAERS Safety Report 24902602 (Version 2)
Quarter: 2025Q1

REPORT INFORMATION
  Report Type: Spontaneous
  Country: US (occurrence: US)
  Receive Date: 20250130
  Receipt Date: 20250217
  Transmission Date: 20250409
  Serious: No
  Sender: ROCHE
  Company Number: US-ROCHE-10000191914

PATIENT
  Age: 51 Year
  Sex: Male
  Weight: 96.62 kg

DRUGS (2)
  1. ALECENSA [Suspect]
     Active Substance: ALECTINIB HYDROCHLORIDE
     Indication: Lung neoplasm malignant
     Dosage: LAST DOSE RECEIVED ON 02/DEC/2024
     Route: 048
     Dates: start: 202303
  2. LORBRENA [Concomitant]
     Active Substance: LORLATINIB

REACTIONS (3)
  - Blood cholesterol increased [Unknown]
  - Joint swelling [Recovered/Resolved]
  - Disease progression [Unknown]

NARRATIVE: CASE EVENT DATE: 20241115
